FAERS Safety Report 15233246 (Version 2)
Quarter: 2019Q4

REPORT INFORMATION
  Report Type: Report from Study
  Country: US (occurrence: US)
  Receive Date: 20180802
  Receipt Date: 20191008
  Transmission Date: 20200122
  Serious: Yes (Other)
  Sender: FDA-Public Use
  Company Number: US-PFIZER INC-2018308643

PATIENT

DRUGS (5)
  1. NAB-PACLITAXEL [Suspect]
     Active Substance: PACLITAXEL
     Indication: PANCREATIC CARCINOMA METASTATIC
     Dosage: 75 MG/M2, CYCLIC (ON DAYS 1, 8, AND 15 OF EACH 28-DAYS CYCLE)
     Route: 042
  2. LEUCOVORIN. [Suspect]
     Active Substance: LEUCOVORIN
     Indication: PANCREATIC CARCINOMA METASTATIC
     Dosage: 20 MG/M2, CYCLIC (ON DAYS 1, 8, AND 15 OF EACH 28-DAYS CYCLE)
     Route: 042
  3. BEVACIZUMAB. [Suspect]
     Active Substance: BEVACIZUMAB
     Indication: PANCREATIC CARCINOMA METASTATIC
     Dosage: 5 MG/KG, CYCLIC (ON DAYS 1 AND 15 OF EACH 28-DAY CYCLE)
     Route: 042
  4. OXALIPLATIN. [Suspect]
     Active Substance: OXALIPLATIN
     Indication: PANCREATIC CARCINOMA METASTATIC
     Dosage: 40 MG/M2, CYCLIC (ON DAYS 1, 8, AND 15 OF EACH 28-DAYS CYCLE)
     Route: 042
  5. 5-FU [Suspect]
     Active Substance: FLUOROURACIL
     Indication: PANCREATIC CARCINOMA METASTATIC
     Dosage: 180 MG/M2, CYCLIC (PER DAY ON DAYS 1 TO 14 OF EACH 28-DAY CYCLE)
     Route: 042

REACTIONS (2)
  - Anaemia [Unknown]
  - Mucosal inflammation [Unknown]
